FAERS Safety Report 6601482-7 (Version None)
Quarter: 2010Q1

REPORT INFORMATION
  Report Type: 
  Country: None (occurrence: None)
  Receive Date: 20100225
  Receipt Date: 20100125
  Transmission Date: 20100710
  Serious: No
  Sender: FDA-Public Use
  Company Number: US-BAYER-201012819NA

PATIENT
  Age: 65 Year
  Sex: Female
  Weight: 66 kg

DRUGS (8)
  1. ULTRAVIST 370 [Suspect]
     Indication: COMPUTERISED TOMOGRAM ABDOMEN
     Dosage: TOTAL DAILY DOSE: 80  ML  UNIT DOSE: 500 ML
     Route: 042
     Dates: start: 20100125, end: 20100125
  2. PRILOSEC [Concomitant]
  3. PREMARIN [Concomitant]
  4. VICODIN [Concomitant]
  5. SEROQUEL [Concomitant]
  6. OMACOR [Concomitant]
  7. CLONIDINE [Concomitant]
  8. KLONOPIN [Concomitant]

REACTIONS (1)
  - PRURITUS [None]
